FAERS Safety Report 5829643-5 (Version None)
Quarter: 2008Q3

REPORT INFORMATION
  Report Type: 
  Country: None (occurrence: None)
  Receive Date: 20080729
  Receipt Date: 20080717
  Transmission Date: 20090109
  Serious: Yes (Hospitalization)
  Sender: FDA-Public Use
  Company Number: 2008BI012978

PATIENT
  Age: 49 Year
  Sex: Female
  Weight: 102.0593 kg

DRUGS (5)
  1. AVONEX [Suspect]
     Indication: MULTIPLE SCLEROSIS
     Dosage: 30 UG;QW;IM, 30 UG;QW;IM, 30 UG;QW;IM
     Route: 030
     Dates: start: 20011009, end: 20030801
  2. AVONEX [Suspect]
     Indication: MULTIPLE SCLEROSIS
     Dosage: 30 UG;QW;IM, 30 UG;QW;IM, 30 UG;QW;IM
     Route: 030
     Dates: start: 20030801, end: 20080428
  3. AVONEX [Suspect]
     Indication: MULTIPLE SCLEROSIS
     Dosage: 30 UG;QW;IM, 30 UG;QW;IM, 30 UG;QW;IM
     Route: 030
     Dates: start: 20080716
  4. PROTONIX [Concomitant]
  5. PRILOSEC [Concomitant]

REACTIONS (6)
  - ANKLE FRACTURE [None]
  - COLOUR BLINDNESS [None]
  - FALL [None]
  - GAIT DISTURBANCE [None]
  - OEDEMA PERIPHERAL [None]
  - PAIN [None]
